FAERS Safety Report 20697573 (Version 1)
Quarter: 2022Q2

REPORT INFORMATION
  Report Type: Spontaneous
  Country: ES (occurrence: ES)
  Receive Date: 20220411
  Receipt Date: 20220411
  Transmission Date: 20220721
  Serious: Yes (Hospitalization, Other)
  Sender: FDA-Public Use
  Company Number: None

PATIENT
  Age: 69 Year
  Sex: Male
  Weight: 75 kg

DRUGS (10)
  1. AMLODIPINE BESYLATE\OLMESARTAN MEDOXOMIL [Suspect]
     Active Substance: AMLODIPINE BESYLATE\OLMESARTAN MEDOXOMIL
     Indication: Hypertension
     Dosage: 40MG/5 MG, QD
     Route: 065
     Dates: start: 20150216, end: 20200212
  2. FOLIC ACID [Concomitant]
     Active Substance: FOLIC ACID
     Indication: Gastrooesophageal reflux disease
     Dosage: 1 DF, QD, 28 TABLETS
     Route: 065
     Dates: start: 20181122
  3. SITAGLIPTIN PHOSPHATE [Concomitant]
     Active Substance: SITAGLIPTIN PHOSPHATE
     Indication: Diabetes mellitus
     Dosage: 1 DF, QD
     Route: 065
     Dates: start: 20150414
  4. OMEPRAZOLE [Concomitant]
     Active Substance: OMEPRAZOLE
     Indication: Gastrooesophageal reflux disease
     Dosage: 1 DF, QD, 28 CAPSULES
     Route: 065
     Dates: start: 20150907
  5. LYRICA [Concomitant]
     Active Substance: PREGABALIN
     Indication: Post herpetic neuralgia
     Dosage: 1 DF, BID (EVERY 12 HOURS), 56 CAPSULES
     Route: 065
     Dates: start: 20181123
  6. PANCRELIPASE [Concomitant]
     Active Substance: PANCRELIPASE
     Indication: Crohn^s disease
     Dosage: 7 DF, QD, 100 CAPSULES
     Route: 065
  7. ACETAMINOPHEN [Concomitant]
     Active Substance: ACETAMINOPHEN
     Indication: Headache
     Dosage: 1 DF, TID (EVERY 8 HOURS), 40 TABLETS
     Route: 065
     Dates: start: 20190325
  8. REPAGLINIDE [Concomitant]
     Active Substance: REPAGLINIDE
     Indication: Diabetes mellitus
     Dosage: 1 DF, TID (EVERY 8 HOURS), 90 TABLETS
     Route: 065
     Dates: start: 20190329
  9. HUMIRA [Concomitant]
     Active Substance: ADALIMUMAB
     Indication: Crohn^s disease
     Dosage: 1 CARTRIDGE/PLUM EVERY 10 DAYS, 2 X 0.4 ML PRE-FILLED PENS
     Route: 065
     Dates: start: 20190206
  10. TAMSULOSIN HYDROCHLORIDE [Concomitant]
     Active Substance: TAMSULOSIN HYDROCHLORIDE
     Indication: Benign prostatic hyperplasia
     Dosage: 1 DF, QD
     Route: 065

REACTIONS (2)
  - Oxygen saturation decreased [Unknown]
  - Hyperkalaemia [Recovered/Resolved]

NARRATIVE: CASE EVENT DATE: 20200207
